FAERS Safety Report 20502229 (Version 1)
Quarter: 2022Q1

REPORT INFORMATION
  Report Type: Spontaneous
  Country: US (occurrence: None)
  Receive Date: 20220219
  Receipt Date: 20220219
  Transmission Date: 20220423
  Serious: Yes (unspecified)
  Sender: FDA-Public Use
  Company Number: None

PATIENT
  Age: 3 Year
  Sex: Female
  Weight: 16.65 kg

DRUGS (1)
  1. GENTAMICIN [Suspect]
     Active Substance: GENTAMICIN

REACTIONS (3)
  - Eye haemorrhage [None]
  - Therapy cessation [None]
  - Application site haemorrhage [None]

NARRATIVE: CASE EVENT DATE: 20220217
